FAERS Safety Report 4991948-8 (Version None)
Quarter: 2006Q2

REPORT INFORMATION
  Report Type: 
  Country: None (occurrence: None)
  Receive Date: 20060504
  Receipt Date: 20050930
  Transmission Date: 20061013
  Serious: Yes (Hospitalization)
  Sender: FDA-Public Use
  Company Number: US-MERCK-0510USA01106

PATIENT
  Age: 66 Year
  Sex: Male
  Weight: 107 kg

DRUGS (2)
  1. VIOXX [Suspect]
     Indication: ARTHRITIS
     Route: 048
     Dates: start: 19991001, end: 20020801
  2. VIOXX [Suspect]
     Route: 048
     Dates: start: 19991001, end: 20020801

REACTIONS (3)
  - EYE DISORDER [None]
  - LACERATION [None]
  - MYOCARDIAL INFARCTION [None]
